FAERS Safety Report 8504653-8 (Version None)
Quarter: 2012Q3

REPORT INFORMATION
  Report Type: 
  Country: None (occurrence: None)
  Receive Date: 20120711
  Receipt Date: 20120709
  Transmission Date: 20120928
  Serious: Yes (Hospitalization, Other)
  Sender: FDA-Public Use
  Company Number: RU-ROCHE-1085405

PATIENT
  Age: 75 Year
  Sex: Female

DRUGS (1)
  1. XENICAL [Suspect]
     Indication: OVERWEIGHT
     Route: 048
     Dates: end: 20120702

REACTIONS (4)
  - SPINAL CORD HERNIATION [None]
  - STEATORRHOEA [None]
  - ABDOMINAL DISTENSION [None]
  - GASTROINTESTINAL PAIN [None]
